FAERS Safety Report 24541036 (Version 1)
Quarter: 2024Q4

REPORT INFORMATION
  Report Type: Spontaneous
  Country: US (occurrence: US)
  Receive Date: 20241023
  Receipt Date: 20241023
  Transmission Date: 20250115
  Serious: No
  Sender: JUBILANT
  Company Number: US-JUBILANT CADISTA PHARMACEUTICALS INC.-2024JUB00023

PATIENT
  Age: 76 Year
  Sex: Male

DRUGS (7)
  1. PREDNISONE [Suspect]
     Active Substance: PREDNISONE
     Indication: Pneumonitis
     Dosage: 100 MG, 1X/DAY
     Dates: start: 202402, end: 202402
  2. PREDNISONE [Suspect]
     Active Substance: PREDNISONE
     Dosage: 80 MG, 1X/DAY
     Dates: start: 202402, end: 202402
  3. PREDNISONE [Suspect]
     Active Substance: PREDNISONE
     Dosage: 60 MG, 1X/DAY
     Dates: start: 202402, end: 202402
  4. PREDNISONE [Suspect]
     Active Substance: PREDNISONE
     Dosage: 40 MG, 1X/DAY
     Dates: start: 202402, end: 202402
  5. PREDNISONE [Suspect]
     Active Substance: PREDNISONE
     Dosage: 80 MG, 2X/DAY IN THE MORNING AND AT NIGHT
     Dates: start: 202402, end: 202403
  6. PREDNISONE [Suspect]
     Active Substance: PREDNISONE
     Dosage: 150 MG DAILY
     Dates: start: 202403, end: 202403
  7. PREDNISONE [Suspect]
     Active Substance: PREDNISONE
     Dosage: 140 MG DAILY
     Dates: start: 202403

REACTIONS (2)
  - Muscular weakness [Not Recovered/Not Resolved]
  - Drug ineffective [Recovered/Resolved]

NARRATIVE: CASE EVENT DATE: 20240101
